FAERS Safety Report 4377938-7 (Version None)
Quarter: 2004Q2

REPORT INFORMATION
  Report Type: 
  Country: None (occurrence: None)
  Receive Date: 20040616
  Receipt Date: 20020705
  Transmission Date: 20050107
  Serious: Yes (Other)
  Sender: FDA-Public Use
  Company Number: PHRM2002FR01893

PATIENT
  Age: 26 Year
  Sex: Female

DRUGS (4)
  1. CLOZAPINE [Suspect]
     Dosage: 225 MG, DAILY
     Route: 048
     Dates: start: 20020401
  2. ECT (ELECTRO CONVULSIVE THERAPY) [Suspect]
     Indication: AFFECTIVE DISORDER
     Dosage: 1 DF, QMO
     Route: 065
     Dates: start: 20011201
  3. TRANXENE [Concomitant]
     Indication: SLEEP DISORDER
     Dosage: 10 MG, DAILY
     Route: 065
  4. FORLAX [Concomitant]
     Indication: CONSTIPATION
     Dosage: 1 TO 3 DF/DAY IF NECESSARY
     Route: 065

REACTIONS (6)
  - ABORTION SPONTANEOUS [None]
  - DRUG EXPOSURE DURING PREGNANCY [None]
  - EVACUATION OF RETAINED PRODUCTS OF CONCEPTION [None]
  - METRORRHAGIA [None]
  - PREMATURE SEPARATION OF PLACENTA [None]
  - SALIVARY HYPERSECRETION [None]
